FAERS Safety Report 22237304 (Version 2)
Quarter: 2023Q2

REPORT INFORMATION
  Report Type: Report from Study
  Country: US (occurrence: US)
  Receive Date: 20230421
  Receipt Date: 20230620
  Transmission Date: 20230721
  Serious: No
  Sender: FDA-Public Use
  Company Number: US-ACADIA PHARMACEUTICALS INC.-ACA-2023-PIM-001256

PATIENT
  Age: 90 Year
  Sex: Female

DRUGS (12)
  1. NUPLAZID [Suspect]
     Active Substance: PIMAVANSERIN TARTRATE
     Indication: Parkinson^s disease psychosis
     Dosage: 34 MILLIGRAM, QD
     Route: 048
     Dates: start: 202303, end: 20230329
  2. NUPLAZID [Suspect]
     Active Substance: PIMAVANSERIN TARTRATE
     Indication: Parkinson^s disease
     Dosage: 34 MILLIGRAM, QD
     Route: 048
  3. VALIUM [Concomitant]
     Active Substance: DIAZEPAM
  4. TYLENOL [Concomitant]
     Active Substance: ACETAMINOPHEN
  5. CALCIUM [Concomitant]
     Active Substance: CALCIUM
  6. VITAMIN D3 [Concomitant]
     Active Substance: CHOLECALCIFEROL
  7. LAMOTRIGINE [Concomitant]
     Active Substance: LAMOTRIGINE
  8. GABAPENTIN [Concomitant]
     Active Substance: GABAPENTIN
  9. PIROXICAM [Concomitant]
     Active Substance: PIROXICAM
  10. CARBIDOPA [Concomitant]
     Active Substance: CARBIDOPA
  11. PEPCID [Concomitant]
     Active Substance: FAMOTIDINE
  12. CARBIDOPA LEVODOPA [Concomitant]
     Active Substance: CARBIDOPA\LEVODOPA

REACTIONS (9)
  - Insomnia [Unknown]
  - Memory impairment [Unknown]
  - Fatigue [Unknown]
  - Movement disorder [Unknown]
  - Generalised oedema [Unknown]
  - Somnolence [Unknown]
  - Confusional state [Unknown]
  - Peripheral swelling [Unknown]
  - Confusional state [Unknown]

NARRATIVE: CASE EVENT DATE: 20230326
